FAERS Safety Report 7307541-8 (Version None)
Quarter: 2011Q1

REPORT INFORMATION
  Report Type: 
  Country: None (occurrence: None)
  Receive Date: 20110223
  Receipt Date: 20110223
  Transmission Date: 20110831
  Serious: Yes (Hospitalization)
  Sender: FDA-Public Use
  Company Number: None

PATIENT
  Sex: Female
  Weight: 73.6 kg

DRUGS (1)
  1. TRIAD STERILE LUBRICATING JELLY TRIAD [Suspect]
     Indication: THERAPEUTIC SKIN CARE TOPICAL
     Dosage: 3GM 6X/DAY
     Dates: start: 20080508, end: 20110201

REACTIONS (2)
  - INFECTION [None]
  - PRODUCT QUALITY ISSUE [None]
